FAERS Safety Report 21347543 (Version 1)
Quarter: 2022Q3

REPORT INFORMATION
  Report Type: Spontaneous
  Country: JP (occurrence: JP)
  Receive Date: 20220919
  Receipt Date: 20220919
  Transmission Date: 20221027
  Serious: Yes (Hospitalization)
  Sender: FDA-Public Use
  Company Number: JP-NOVOPROD-957854

PATIENT
  Age: 72 Year
  Sex: Male
  Weight: 73.1 kg

DRUGS (13)
  1. RYBELSUS [Suspect]
     Active Substance: SEMAGLUTIDE
     Indication: Diabetes mellitus
     Dosage: 14 MG, QD
     Route: 048
     Dates: start: 20220614, end: 20220901
  2. CARVEDILOL [Concomitant]
     Active Substance: CARVEDILOL
     Indication: Product used for unknown indication
     Dosage: UNK
     Route: 048
  3. DICLOFENAC SODIUM [Concomitant]
     Active Substance: DICLOFENAC SODIUM
     Indication: Product used for unknown indication
     Route: 054
  4. LIMAPROST [Concomitant]
     Active Substance: LIMAPROST
     Indication: Product used for unknown indication
     Dosage: UNK
     Route: 048
  5. LYRICA [Concomitant]
     Active Substance: PREGABALIN
     Indication: Product used for unknown indication
     Dosage: 375 MG, QD
     Route: 048
  6. BROTIZOLAM [Concomitant]
     Active Substance: BROTIZOLAM
     Indication: Product used for unknown indication
     Dosage: 0.25 MG, QD
     Route: 048
  7. METHYLCOBALAMIN [Concomitant]
     Active Substance: METHYLCOBALAMIN
     Indication: Product used for unknown indication
     Dosage: 1500 ?G, QD
     Route: 048
  8. ASPIRIN [Concomitant]
     Active Substance: ASPIRIN
     Indication: Brain stem infarction
     Dosage: 100 MG, QD
     Route: 048
  9. TAMSULOSIN HYDROCHLORIDE [Concomitant]
     Active Substance: TAMSULOSIN HYDROCHLORIDE
     Indication: Product used for unknown indication
     Dosage: 0.20 MG, QD
     Route: 048
  10. BENIDIPINE HYDROCHLORIDE [Concomitant]
     Active Substance: BENIDIPINE HYDROCHLORIDE
     Indication: Hypertension
     Dosage: 4 MG, QD
     Route: 048
  11. ROSUVASTATIN [Concomitant]
     Active Substance: ROSUVASTATIN
     Indication: Dyslipidaemia
     Dosage: 2.5 MG, QD
     Route: 048
  12. CLOPIDOGREL [Concomitant]
     Active Substance: CLOPIDOGREL BISULFATE
     Indication: Brain stem infarction
     Dosage: 75 MG, QD
     Route: 048
  13. GLIMEPIRIDE [Concomitant]
     Active Substance: GLIMEPIRIDE
     Indication: Diabetes mellitus
     Dosage: 0.5 MG, QD
     Route: 048

REACTIONS (3)
  - Upper gastrointestinal haemorrhage [Recovering/Resolving]
  - Lower gastrointestinal haemorrhage [Recovering/Resolving]
  - Diverticulum intestinal haemorrhagic [Recovering/Resolving]

NARRATIVE: CASE EVENT DATE: 20220901
